FAERS Safety Report 25824724 (Version 1)
Quarter: 2025Q3

REPORT INFORMATION
  Report Type: Spontaneous
  Country: GB (occurrence: GB)
  Receive Date: 20250919
  Receipt Date: 20250919
  Transmission Date: 20251020
  Serious: Yes (Disabling)
  Sender: MYLAN
  Company Number: GB-MHRA-TPP11345737C5406911YC1757590319713

PATIENT
  Age: 69 Year
  Sex: Female
  Weight: 57 kg

DRUGS (64)
  1. MIRTAZAPINE [Suspect]
     Active Substance: MIRTAZAPINE
     Indication: Depressed mood
     Dosage: 15 MILLIGRAM, PM (TAKE ONCE DAILY AT NIGHT)
     Dates: start: 20250807, end: 20250904
  2. MIRTAZAPINE [Suspect]
     Active Substance: MIRTAZAPINE
     Indication: Insomnia
     Dosage: 15 MILLIGRAM, PM (TAKE ONCE DAILY AT NIGHT)
     Route: 065
     Dates: start: 20250807, end: 20250904
  3. MIRTAZAPINE [Suspect]
     Active Substance: MIRTAZAPINE
     Dosage: 15 MILLIGRAM, PM (TAKE ONCE DAILY AT NIGHT)
     Route: 065
     Dates: start: 20250807, end: 20250904
  4. MIRTAZAPINE [Suspect]
     Active Substance: MIRTAZAPINE
     Dosage: 15 MILLIGRAM, PM (TAKE ONCE DAILY AT NIGHT)
     Dates: start: 20250807, end: 20250904
  5. FLUCLOXACILLIN [Concomitant]
     Active Substance: FLUCLOXACILLIN
     Indication: Ill-defined disorder
     Dosage: 1 DOSAGE FORM, QID (TAKE ONE 4 TIMES/DAY FOR 5 DAYS)
     Dates: start: 20250702, end: 20250707
  6. FLUCLOXACILLIN [Concomitant]
     Active Substance: FLUCLOXACILLIN
     Dosage: 1 DOSAGE FORM, QID (TAKE ONE 4 TIMES/DAY FOR 5 DAYS)
     Route: 065
     Dates: start: 20250702, end: 20250707
  7. FLUCLOXACILLIN [Concomitant]
     Active Substance: FLUCLOXACILLIN
     Dosage: 1 DOSAGE FORM, QID (TAKE ONE 4 TIMES/DAY FOR 5 DAYS)
     Route: 065
     Dates: start: 20250702, end: 20250707
  8. FLUCLOXACILLIN [Concomitant]
     Active Substance: FLUCLOXACILLIN
     Dosage: 1 DOSAGE FORM, QID (TAKE ONE 4 TIMES/DAY FOR 5 DAYS)
     Dates: start: 20250702, end: 20250707
  9. CODEINE PHOSPHATE [Concomitant]
     Active Substance: CODEINE PHOSPHATE
     Indication: Ill-defined disorder
     Dosage: UNK UNK, QID (TAKE ONE OR TWO TABLETS 4 TIMES A DAY WHEN REQU...)
     Dates: start: 20250911
  10. CODEINE PHOSPHATE [Concomitant]
     Active Substance: CODEINE PHOSPHATE
     Dosage: UNK UNK, QID (TAKE ONE OR TWO TABLETS 4 TIMES A DAY WHEN REQU...)
     Route: 065
     Dates: start: 20250911
  11. CODEINE PHOSPHATE [Concomitant]
     Active Substance: CODEINE PHOSPHATE
     Dosage: UNK UNK, QID (TAKE ONE OR TWO TABLETS 4 TIMES A DAY WHEN REQU...)
     Route: 065
     Dates: start: 20250911
  12. CODEINE PHOSPHATE [Concomitant]
     Active Substance: CODEINE PHOSPHATE
     Dosage: UNK UNK, QID (TAKE ONE OR TWO TABLETS 4 TIMES A DAY WHEN REQU...)
     Dates: start: 20250911
  13. DOCUSATE SODIUM [Concomitant]
     Active Substance: DOCUSATE SODIUM
     Indication: Ill-defined disorder
     Dosage: 1 DOSAGE FORM, QID (TAKE UPTO ONE TABLET 4 TIMES A DAY WHEN REQUIRE...)
     Dates: start: 20250911
  14. DOCUSATE SODIUM [Concomitant]
     Active Substance: DOCUSATE SODIUM
     Dosage: 1 DOSAGE FORM, QID (TAKE UPTO ONE TABLET 4 TIMES A DAY WHEN REQUIRE...)
     Route: 065
     Dates: start: 20250911
  15. DOCUSATE SODIUM [Concomitant]
     Active Substance: DOCUSATE SODIUM
     Dosage: 1 DOSAGE FORM, QID (TAKE UPTO ONE TABLET 4 TIMES A DAY WHEN REQUIRE...)
     Route: 065
     Dates: start: 20250911
  16. DOCUSATE SODIUM [Concomitant]
     Active Substance: DOCUSATE SODIUM
     Dosage: 1 DOSAGE FORM, QID (TAKE UPTO ONE TABLET 4 TIMES A DAY WHEN REQUIRE...)
     Dates: start: 20250911
  17. TRAZODONE [Concomitant]
     Active Substance: TRAZODONE HYDROCHLORIDE
     Indication: Ill-defined disorder
     Dosage: 1 DOSAGE FORM, PM (TAKE ONE AT NIGHT)
     Dates: start: 20250911
  18. TRAZODONE [Concomitant]
     Active Substance: TRAZODONE HYDROCHLORIDE
     Dosage: 1 DOSAGE FORM, PM (TAKE ONE AT NIGHT)
     Route: 065
     Dates: start: 20250911
  19. TRAZODONE [Concomitant]
     Active Substance: TRAZODONE HYDROCHLORIDE
     Dosage: 1 DOSAGE FORM, PM (TAKE ONE AT NIGHT)
     Route: 065
     Dates: start: 20250911
  20. TRAZODONE [Concomitant]
     Active Substance: TRAZODONE HYDROCHLORIDE
     Dosage: 1 DOSAGE FORM, PM (TAKE ONE AT NIGHT)
     Dates: start: 20250911
  21. AMITRIPTYLINE HYDROCHLORIDE [Concomitant]
     Active Substance: AMITRIPTYLINE HYDROCHLORIDE
     Indication: Ill-defined disorder
     Dosage: 2 DOSAGE FORM, PM (2 NOCTE(MIGRAINE))
     Dates: start: 20230204
  22. AMITRIPTYLINE HYDROCHLORIDE [Concomitant]
     Active Substance: AMITRIPTYLINE HYDROCHLORIDE
     Dosage: 2 DOSAGE FORM, PM (2 NOCTE(MIGRAINE))
     Route: 065
     Dates: start: 20230204
  23. AMITRIPTYLINE HYDROCHLORIDE [Concomitant]
     Active Substance: AMITRIPTYLINE HYDROCHLORIDE
     Dosage: 2 DOSAGE FORM, PM (2 NOCTE(MIGRAINE))
     Route: 065
     Dates: start: 20230204
  24. AMITRIPTYLINE HYDROCHLORIDE [Concomitant]
     Active Substance: AMITRIPTYLINE HYDROCHLORIDE
     Dosage: 2 DOSAGE FORM, PM (2 NOCTE(MIGRAINE))
     Dates: start: 20230204
  25. TIOTROPIUM BROMIDE [Concomitant]
     Active Substance: TIOTROPIUM BROMIDE
     Indication: Ill-defined disorder
     Dosage: 1 DOSAGE FORM, QD (INHALE 1 DOSE ONCE DAILY)
     Dates: start: 20230204
  26. TIOTROPIUM BROMIDE [Concomitant]
     Active Substance: TIOTROPIUM BROMIDE
     Dosage: 1 DOSAGE FORM, QD (INHALE 1 DOSE ONCE DAILY)
     Route: 055
     Dates: start: 20230204
  27. TIOTROPIUM BROMIDE [Concomitant]
     Active Substance: TIOTROPIUM BROMIDE
     Dosage: 1 DOSAGE FORM, QD (INHALE 1 DOSE ONCE DAILY)
     Route: 055
     Dates: start: 20230204
  28. TIOTROPIUM BROMIDE [Concomitant]
     Active Substance: TIOTROPIUM BROMIDE
     Dosage: 1 DOSAGE FORM, QD (INHALE 1 DOSE ONCE DAILY)
     Dates: start: 20230204
  29. FEXOFENADINE [Concomitant]
     Active Substance: FEXOFENADINE HYDROCHLORIDE
     Indication: Ill-defined disorder
     Dosage: 1 DOSAGE FORM, QD (TAKE ONE DAILY)
     Dates: start: 20230204
  30. FEXOFENADINE [Concomitant]
     Active Substance: FEXOFENADINE HYDROCHLORIDE
     Dosage: 1 DOSAGE FORM, QD (TAKE ONE DAILY)
     Route: 065
     Dates: start: 20230204
  31. FEXOFENADINE [Concomitant]
     Active Substance: FEXOFENADINE HYDROCHLORIDE
     Dosage: 1 DOSAGE FORM, QD (TAKE ONE DAILY)
     Route: 065
     Dates: start: 20230204
  32. FEXOFENADINE [Concomitant]
     Active Substance: FEXOFENADINE HYDROCHLORIDE
     Dosage: 1 DOSAGE FORM, QD (TAKE ONE DAILY)
     Dates: start: 20230204
  33. RAMIPRIL [Concomitant]
     Active Substance: RAMIPRIL
     Indication: Ill-defined disorder
     Dosage: 1 DOSAGE FORM, QD (ONE DAILY (FOR BLOOD PRESSURE))
     Dates: start: 20230204
  34. RAMIPRIL [Concomitant]
     Active Substance: RAMIPRIL
     Dosage: 1 DOSAGE FORM, QD (ONE DAILY (FOR BLOOD PRESSURE))
     Route: 065
     Dates: start: 20230204
  35. RAMIPRIL [Concomitant]
     Active Substance: RAMIPRIL
     Dosage: 1 DOSAGE FORM, QD (ONE DAILY (FOR BLOOD PRESSURE))
     Route: 065
     Dates: start: 20230204
  36. RAMIPRIL [Concomitant]
     Active Substance: RAMIPRIL
     Dosage: 1 DOSAGE FORM, QD (ONE DAILY (FOR BLOOD PRESSURE))
     Dates: start: 20230204
  37. DIBUCAINE HYDROCHLORIDE\PREDNISOLONE [Concomitant]
     Active Substance: DIBUCAINE HYDROCHLORIDE\PREDNISOLONE
     Indication: Ill-defined disorder
     Dosage: UNK UNK, BID (TO BE TAKEN TWICE DAILY WHEN REQUIRED)
     Dates: start: 20230204
  38. DIBUCAINE HYDROCHLORIDE\PREDNISOLONE [Concomitant]
     Active Substance: DIBUCAINE HYDROCHLORIDE\PREDNISOLONE
     Dosage: UNK UNK, BID (TO BE TAKEN TWICE DAILY WHEN REQUIRED)
     Route: 065
     Dates: start: 20230204
  39. DIBUCAINE HYDROCHLORIDE\PREDNISOLONE [Concomitant]
     Active Substance: DIBUCAINE HYDROCHLORIDE\PREDNISOLONE
     Dosage: UNK UNK, BID (TO BE TAKEN TWICE DAILY WHEN REQUIRED)
     Route: 065
     Dates: start: 20230204
  40. DIBUCAINE HYDROCHLORIDE\PREDNISOLONE [Concomitant]
     Active Substance: DIBUCAINE HYDROCHLORIDE\PREDNISOLONE
     Dosage: UNK UNK, BID (TO BE TAKEN TWICE DAILY WHEN REQUIRED)
     Dates: start: 20230204
  41. TEMAZEPAM [Concomitant]
     Active Substance: TEMAZEPAM
     Indication: Ill-defined disorder
     Dosage: 1 DOSAGE FORM, PM (TAKE ONE AT NIGHT)
     Dates: start: 20230204
  42. TEMAZEPAM [Concomitant]
     Active Substance: TEMAZEPAM
     Dosage: 1 DOSAGE FORM, PM (TAKE ONE AT NIGHT)
     Route: 065
     Dates: start: 20230204
  43. TEMAZEPAM [Concomitant]
     Active Substance: TEMAZEPAM
     Dosage: 1 DOSAGE FORM, PM (TAKE ONE AT NIGHT)
     Route: 065
     Dates: start: 20230204
  44. TEMAZEPAM [Concomitant]
     Active Substance: TEMAZEPAM
     Dosage: 1 DOSAGE FORM, PM (TAKE ONE AT NIGHT)
     Dates: start: 20230204
  45. VENTOLIN [Concomitant]
     Active Substance: ALBUTEROL SULFATE
     Indication: Ill-defined disorder
  46. VENTOLIN [Concomitant]
     Active Substance: ALBUTEROL SULFATE
     Route: 055
  47. VENTOLIN [Concomitant]
     Active Substance: ALBUTEROL SULFATE
     Route: 055
  48. VENTOLIN [Concomitant]
     Active Substance: ALBUTEROL SULFATE
  49. METHENAMINE HIPPURATE [Concomitant]
     Active Substance: METHENAMINE HIPPURATE
     Indication: Ill-defined disorder
     Dosage: 1 DOSAGE FORM, QD (TAKE ONE TWICE DAILY AS PER UROLOGY ADVICE.)
     Dates: start: 20230519
  50. METHENAMINE HIPPURATE [Concomitant]
     Active Substance: METHENAMINE HIPPURATE
     Dosage: 1 DOSAGE FORM, QD (TAKE ONE TWICE DAILY AS PER UROLOGY ADVICE.)
     Route: 065
     Dates: start: 20230519
  51. METHENAMINE HIPPURATE [Concomitant]
     Active Substance: METHENAMINE HIPPURATE
     Dosage: 1 DOSAGE FORM, QD (TAKE ONE TWICE DAILY AS PER UROLOGY ADVICE.)
     Route: 065
     Dates: start: 20230519
  52. METHENAMINE HIPPURATE [Concomitant]
     Active Substance: METHENAMINE HIPPURATE
     Dosage: 1 DOSAGE FORM, QD (TAKE ONE TWICE DAILY AS PER UROLOGY ADVICE.)
     Dates: start: 20230519
  53. CHLORPHENIRAMINE MALEATE [Concomitant]
     Active Substance: CHLORPHENIRAMINE MALEATE
     Indication: Ill-defined disorder
     Dosage: 1 DOSAGE FORM, PM (TAKE ONE TABLET AT NIGHT AS NECESSARY (FOR IRR...)
     Dates: start: 20241106
  54. CHLORPHENIRAMINE MALEATE [Concomitant]
     Active Substance: CHLORPHENIRAMINE MALEATE
     Dosage: 1 DOSAGE FORM, PM (TAKE ONE TABLET AT NIGHT AS NECESSARY (FOR IRR...)
     Route: 065
     Dates: start: 20241106
  55. CHLORPHENIRAMINE MALEATE [Concomitant]
     Active Substance: CHLORPHENIRAMINE MALEATE
     Dosage: 1 DOSAGE FORM, PM (TAKE ONE TABLET AT NIGHT AS NECESSARY (FOR IRR...)
     Route: 065
     Dates: start: 20241106
  56. CHLORPHENIRAMINE MALEATE [Concomitant]
     Active Substance: CHLORPHENIRAMINE MALEATE
     Dosage: 1 DOSAGE FORM, PM (TAKE ONE TABLET AT NIGHT AS NECESSARY (FOR IRR...)
     Dates: start: 20241106
  57. OMEPRAZOLE [Concomitant]
     Active Substance: OMEPRAZOLE
     Indication: Ill-defined disorder
  58. OMEPRAZOLE [Concomitant]
     Active Substance: OMEPRAZOLE
     Route: 065
  59. OMEPRAZOLE [Concomitant]
     Active Substance: OMEPRAZOLE
     Route: 065
  60. OMEPRAZOLE [Concomitant]
     Active Substance: OMEPRAZOLE
  61. ESTRIOL [Concomitant]
     Active Substance: ESTRIOL
     Indication: Ill-defined disorder
     Dosage: UNK UNK, BIWEEKLY (APPLY AT NIGHT TWICE A WEEK)
     Dates: start: 20250528
  62. ESTRIOL [Concomitant]
     Active Substance: ESTRIOL
     Dosage: UNK UNK, BIWEEKLY (APPLY AT NIGHT TWICE A WEEK)
     Route: 065
     Dates: start: 20250528
  63. ESTRIOL [Concomitant]
     Active Substance: ESTRIOL
     Dosage: UNK UNK, BIWEEKLY (APPLY AT NIGHT TWICE A WEEK)
     Route: 065
     Dates: start: 20250528
  64. ESTRIOL [Concomitant]
     Active Substance: ESTRIOL
     Dosage: UNK UNK, BIWEEKLY (APPLY AT NIGHT TWICE A WEEK)
     Dates: start: 20250528

REACTIONS (4)
  - Insomnia [Recovered/Resolved]
  - Restless legs syndrome [Recovered/Resolved]
  - Paraesthesia [Recovered/Resolved]
  - Somnolence [Recovered/Resolved]

NARRATIVE: CASE EVENT DATE: 20250809
